FAERS Safety Report 14502095 (Version 2)
Quarter: 2018Q1

REPORT INFORMATION
  Report Type: Spontaneous
  Country: TR (occurrence: TR)
  Receive Date: 20180208
  Receipt Date: 20180221
  Transmission Date: 20180509
  Serious: Yes (Other)
  Sender: FDA-Public Use
  Company Number: TR-ROCHE-2064032

PATIENT
  Age: 67 Year
  Sex: Male
  Weight: 89 kg

DRUGS (3)
  1. PIRACETAM [Concomitant]
     Active Substance: PIRACETAM
     Route: 065
     Dates: start: 20140401
  2. PEG-INTERFERON ALFA 2A [Suspect]
     Active Substance: PEGINTERFERON ALFA-2A
     Indication: CHRONIC HEPATITIS
     Dosage: POWDER FOR SUSPENSION
     Route: 058
     Dates: start: 20100518, end: 20120326
  3. TENOFOVIR [Suspect]
     Active Substance: TENOFOVIR
     Indication: CHRONIC HEPATITIS
     Route: 048
     Dates: start: 20100518, end: 20120326

REACTIONS (1)
  - Hepatocellular carcinoma [Not Recovered/Not Resolved]

NARRATIVE: CASE EVENT DATE: 20170918
